FAERS Safety Report 5464140-0 (Version None)
Quarter: 2007Q3

REPORT INFORMATION
  Report Type: 
  Country: None (occurrence: None)
  Receive Date: 20070921
  Receipt Date: 20070913
  Transmission Date: 20080115
  Serious: Yes (Other)
  Sender: FDA-Public Use
  Company Number: JP-ASTRAZENECA-2007AP05848

PATIENT
  Age: 77 Year
  Sex: Male

DRUGS (1)
  1. IRESSA [Suspect]
     Route: 048
     Dates: start: 20070701, end: 20070801

REACTIONS (3)
  - DIARRHOEA [None]
  - LIVER DISORDER [None]
  - PRURITUS [None]
